FAERS Safety Report 7148680-4 (Version None)
Quarter: 2010Q4

REPORT INFORMATION
  Report Type: 
  Country: None (occurrence: None)
  Receive Date: 20101209
  Receipt Date: 20101126
  Transmission Date: 20110411
  Serious: Yes (Hospitalization)
  Sender: FDA-Public Use
  Company Number: JP-AMGEN-JPNCT2010007752

PATIENT

DRUGS (11)
  1. PANITUMUMAB [Suspect]
     Indication: COLORECTAL CANCER
     Dosage: 6 MG/KG, Q2WK
     Route: 041
     Dates: start: 20100827
  2. IRINOTECAN HYDROCHLORIDE [Suspect]
     Indication: COLORECTAL CANCER
     Route: 041
     Dates: start: 20100827
  3. ANTIHISTAMINES [Concomitant]
     Indication: PROPHYLAXIS
     Route: 065
  4. GRANISETRON HCL [Concomitant]
     Route: 042
  5. DECADRON PHOSPHATE [Concomitant]
     Route: 042
  6. PRIMPERAN [Concomitant]
     Route: 048
  7. LEUCON [Concomitant]
     Route: 048
  8. FENTOS TAPE [Concomitant]
     Route: 062
  9. OXINORM [Concomitant]
     Route: 048
  10. MUCOSTA [Concomitant]
     Route: 048
  11. ALL OTHER THERAPEUTIC PRODUCTS [Concomitant]
     Route: 048

REACTIONS (2)
  - DERMATITIS ACNEIFORM [None]
  - FEBRILE NEUTROPENIA [None]
